FAERS Safety Report 8312054-0 (Version None)
Quarter: 2012Q2

REPORT INFORMATION
  Report Type: 
  Country: None (occurrence: None)
  Receive Date: 20120425
  Receipt Date: 20120412
  Transmission Date: 20120825
  Serious: No
  Sender: FDA-Public Use
  Company Number: US-ELI_LILLY_AND_COMPANY-US201201007555

PATIENT
  Sex: Male
  Weight: 98.413 kg

DRUGS (3)
  1. INTERFERON [Concomitant]
     Indication: HEPATITIS C
  2. CYMBALTA [Suspect]
     Dosage: 30 MG, QD
  3. CYMBALTA [Suspect]
     Indication: DEPRESSION
     Dosage: 60 MG, QD
     Dates: start: 20100101

REACTIONS (5)
  - DRUG INEFFECTIVE [None]
  - BLOOD BILIRUBIN INCREASED [None]
  - ASPARTATE AMINOTRANSFERASE INCREASED [None]
  - MUSCLE SPASMS [None]
  - ALANINE AMINOTRANSFERASE INCREASED [None]
